FAERS Safety Report 7545798-9 (Version None)
Quarter: 2011Q2

REPORT INFORMATION
  Report Type: 
  Country: None (occurrence: None)
  Receive Date: 20110613
  Receipt Date: 20110613
  Transmission Date: 20111010
  Serious: No
  Sender: FDA-Public Use
  Company Number: None

PATIENT
  Age: 70 Year
  Sex: Male
  Weight: 105 kg

DRUGS (1)
  1. FLEBOGAMMA [Suspect]
     Indication: CHRONIC LYMPHOCYTIC LEUKAEMIA
     Dosage: 30 GM MONTHLY IV DRIP
     Route: 041
     Dates: start: 20100610, end: 20110609

REACTIONS (3)
  - INFUSION RELATED REACTION [None]
  - BACK PAIN [None]
  - DYSPNOEA [None]
